FAERS Safety Report 8607899 (Version 3)
Quarter: 2013Q4

REPORT INFORMATION
  Report Type: Spontaneous
  Country: US (occurrence: US)
  Receive Date: 20120611
  Receipt Date: 20131129
  Transmission Date: 20140711
  Serious: Yes (Other)
  Sender: FDA-Public Use
  Company Number: US-ASTRAZENECA-2012SE35337

PATIENT
  Age: 47 Year
  Sex: Male
  Weight: 74.8 kg

DRUGS (9)
  1. NEXIUM [Suspect]
     Indication: GASTROOESOPHAGEAL REFLUX DISEASE
     Dosage: MORNING AND EVENING SOMETIMES JUST ONE PER DAY
     Route: 048
  2. NEXIUM [Suspect]
     Indication: GASTROOESOPHAGEAL REFLUX DISEASE
     Route: 048
     Dates: start: 20080819
  3. TUMS [Concomitant]
  4. ALKA SELTZER [Concomitant]
  5. PEPTO-BISMOL [Concomitant]
  6. METOPROLOL [Concomitant]
  7. FERROUS SULFATE [Concomitant]
  8. CALCIUM [Concomitant]
  9. TYNENOL [Concomitant]

REACTIONS (5)
  - Femur fracture [Unknown]
  - Osteoporosis [Unknown]
  - Arthritis [Unknown]
  - Bone pain [Unknown]
  - Osteopenia [Unknown]
